FAERS Safety Report 10177795 (Version 1)
Quarter: 2014Q2

REPORT INFORMATION
  Report Type: Spontaneous
  Country: US (occurrence: US)
  Receive Date: 20140516
  Receipt Date: 20140516
  Transmission Date: 20141212
  Serious: Yes (Hospitalization)
  Sender: FDA-Public Use
  Company Number: US-ASTRAZENECA-2014SE31728

PATIENT
  Age: 53 Year
  Sex: Female

DRUGS (9)
  1. LISINOPRIL [Suspect]
     Route: 048
  2. POTASSIUM CHLORIDE [Suspect]
  3. SPIRONOLACTONE [Suspect]
  4. SIMVASTATIN [Concomitant]
  5. DIGOXIN [Concomitant]
  6. FUROSEMIDE [Concomitant]
  7. CARVEDILOL [Concomitant]
  8. INSULIN [Concomitant]
     Dosage: 70/30 (40 UNITS EVERY AM, 25 UNITS EVERY PM)
  9. FERROUS SULFATE [Concomitant]

REACTIONS (6)
  - Atrioventricular block first degree [Unknown]
  - Paralysis flaccid [Unknown]
  - Fall [Unknown]
  - Renal failure acute [Unknown]
  - Hyperkalaemia [Unknown]
  - Paraesthesia [Unknown]
